FAERS Safety Report 4664799-1 (Version None)
Quarter: 2005Q2

REPORT INFORMATION
  Report Type: 
  Country: None (occurrence: None)
  Receive Date: 20050516
  Receipt Date: 20050429
  Transmission Date: 20051028
  Serious: Yes (Hospitalization)
  Sender: FDA-Public Use
  Company Number: DSA_26374_2005

PATIENT
  Age: 91 Year
  Sex: Male

DRUGS (11)
  1. LORAZEPAM [Suspect]
     Dosage: 1 MG ONCE PO
     Route: 048
     Dates: start: 20050426, end: 20050426
  2. ALLOPURINOL [Suspect]
     Dosage: 100 MG ONCE PO
     Route: 048
     Dates: start: 29950426, end: 20050426
  3. BEXTRA [Suspect]
     Dosage: 20 MG ONCE PO
     Route: 048
     Dates: start: 20050426, end: 20050426
  4. DIAZEPAM [Suspect]
     Dosage: 5 MG ONCE PO
     Route: 048
     Dates: start: 20050426, end: 20050426
  5. DIPIPERON [Suspect]
     Dosage: 8 MG ONCE PO
     Route: 048
     Dates: start: 20050426, end: 20050426
  6. KALIUM DURULES [Suspect]
     Dosage: 1500 MG ONCE PO
     Route: 048
     Dates: start: 20050426, end: 20040426
  7. MOLSIDOMINE [Suspect]
     Dosage: 8 MG ONCE PO
     Route: 048
     Dates: start: 20050426, end: 20050426
  8. MOXIDECTIN [Suspect]
     Dosage: 1 CAP ONCE PO
     Route: 048
     Dates: start: 20050426, end: 20050426
  9. SIMVASTATIN [Suspect]
     Dosage: 20 MG ONCE PO
     Route: 048
     Dates: start: 20050426, end: 20050426
  10. TAFIL [Suspect]
     Dosage: 1 MG ONCE PO
     Route: 048
     Dates: start: 20050426, end: 20040426
  11. TRAMADOL HCL [Suspect]
     Dosage: 30 GTT ONCE PO
     Route: 048
     Dates: start: 20050426, end: 20050426

REACTIONS (5)
  - DEHYDRATION [None]
  - FALL [None]
  - MULTIPLE DRUG OVERDOSE ACCIDENTAL [None]
  - SOMNOLENCE [None]
  - WRONG DRUG ADMINISTERED [None]
